FAERS Safety Report 11338966 (Version 1)
Quarter: 2015Q3

REPORT INFORMATION
  Report Type: Spontaneous
  Country: US (occurrence: US)
  Receive Date: 20150803
  Receipt Date: 20150803
  Transmission Date: 20151125
  Serious: No
  Sender: FDA-Public Use
  Company Number: US-ELI_LILLY_AND_COMPANY-US200901001978

PATIENT
  Age: 21 Year
  Sex: Male

DRUGS (2)
  1. STRATTERA [Suspect]
     Active Substance: ATOMOXETINE HYDROCHLORIDE
     Dosage: 50 MG, OTHER
     Route: 065
     Dates: start: 20090113, end: 20090113
  2. STRATTERA [Suspect]
     Active Substance: ATOMOXETINE HYDROCHLORIDE
     Indication: ATTENTION DEFICIT/HYPERACTIVITY DISORDER
     Dosage: 25 MG, DAILY (1/D)
     Route: 065

REACTIONS (4)
  - Drug administration error [Unknown]
  - Decreased appetite [Unknown]
  - Adverse event [Unknown]
  - Eating disorder [Unknown]

NARRATIVE: CASE EVENT DATE: 20090113
